FAERS Safety Report 25650093 (Version 1)
Quarter: 2025Q3

REPORT INFORMATION
  Report Type: Spontaneous
  Country: US (occurrence: US)
  Receive Date: 20250806
  Receipt Date: 20250806
  Transmission Date: 20251020
  Serious: No
  Sender: Day One Biopharmaceuticals
  Company Number: US-Day One Biopharmaceuticals Inc.-2025US001098

PATIENT

DRUGS (1)
  1. OJEMDA [Suspect]
     Active Substance: TOVORAFENIB
     Indication: Glioma
     Dates: start: 202406

REACTIONS (1)
  - Hand-foot-and-mouth disease [Recovering/Resolving]
